FAERS Safety Report 8421353-3 (Version None)
Quarter: 2012Q2

REPORT INFORMATION
  Report Type: 
  Country: None (occurrence: None)
  Receive Date: 20120608
  Receipt Date: 20120531
  Transmission Date: 20120825
  Serious: Yes (Other)
  Sender: FDA-Public Use
  Company Number: PHHY2012TR046638

PATIENT
  Age: 60 Year
  Sex: Female

DRUGS (5)
  1. EVEROLIMUS [Suspect]
     Indication: RENAL TRANSPLANT
     Dosage: 0.5 TO 1 MG/DAY
  2. STEROIDS [Concomitant]
  3. TACROLIMUS [Concomitant]
  4. BASILIXIMAB [Concomitant]
  5. MYCOPHENOLATE MOFETIL [Concomitant]

REACTIONS (9)
  - GASTROINTESTINAL DISORDER [None]
  - HYPERGLYCAEMIA [None]
  - LYMPHOEDEMA [None]
  - OEDEMA PERIPHERAL [None]
  - GASTRITIS ATROPHIC [None]
  - DUODENITIS [None]
  - BREAST OEDEMA [None]
  - GASTRIC POLYPS [None]
  - HEPATIC CYST [None]
